FAERS Safety Report 19790186 (Version 1)
Quarter: 2021Q3

REPORT INFORMATION
  Report Type: Spontaneous
  Country: JP (occurrence: JP)
  Receive Date: 20210906
  Receipt Date: 20210906
  Transmission Date: 20211014
  Serious: Yes (Other)
  Sender: FDA-Public Use
  Company Number: NVSJ2021JP006428

PATIENT
  Age: 52 Year
  Sex: Female

DRUGS (2)
  1. MAYZENT [Suspect]
     Active Substance: SIPONIMOD
     Indication: SECONDARY PROGRESSIVE MULTIPLE SCLEROSIS
     Dosage: 1 MG
     Route: 048
     Dates: start: 20210415
  2. GILENYA [Suspect]
     Active Substance: FINGOLIMOD HYDROCHLORIDE
     Indication: SECONDARY PROGRESSIVE MULTIPLE SCLEROSIS
     Dosage: UNK
     Route: 048
     Dates: start: 201210

REACTIONS (5)
  - Ocular dysmetria [Unknown]
  - Lymphocyte count decreased [Not Recovered/Not Resolved]
  - Expanded disability status scale score increased [Unknown]
  - Urge incontinence [Unknown]
  - Strabismus [Unknown]

NARRATIVE: CASE EVENT DATE: 20210415
